FAERS Safety Report 10260550 (Version 2)
Quarter: 2014Q3

REPORT INFORMATION
  Report Type: Spontaneous
  Country: US (occurrence: US)
  Receive Date: 20140626
  Receipt Date: 20140712
  Transmission Date: 20150326
  Serious: Yes (Other)
  Sender: FDA-Public Use
  Company Number: US-ABBVIE-14P-163-1251605-00

PATIENT
  Age: 51 Year
  Sex: Male
  Weight: 93.07 kg

DRUGS (6)
  1. DEPAKOTE [Suspect]
     Active Substance: DIVALPROEX SODIUM
     Dosage: IN THE EVENING
     Dates: start: 2013, end: 2013
  2. DEPAKOTE [Suspect]
     Active Substance: DIVALPROEX SODIUM
     Dosage: IN THE EVENING
     Dates: start: 2013, end: 201305
  3. DEPAKOTE [Suspect]
     Active Substance: DIVALPROEX SODIUM
     Dates: start: 201307
  4. DEPAKOTE [Suspect]
     Active Substance: DIVALPROEX SODIUM
     Dosage: IN THE EVENING
     Dates: start: 2013, end: 2013
  5. DEPAKOTE [Suspect]
     Active Substance: DIVALPROEX SODIUM
     Dosage: IN THE EVENING
     Dates: start: 2013, end: 2013
  6. DEPAKOTE [Suspect]
     Active Substance: DIVALPROEX SODIUM
     Indication: CONVULSION
     Dates: start: 2004, end: 2013

REACTIONS (7)
  - Skin abrasion [Recovered/Resolved]
  - Thinking abnormal [Recovered/Resolved]
  - Fall [Recovered/Resolved]
  - Convulsion [Recovered/Resolved]
  - Blood alcohol increased [Recovered/Resolved]
  - Somnolence [Recovered/Resolved]
  - Generalised tonic-clonic seizure [Recovered/Resolved]

NARRATIVE: CASE EVENT DATE: 20130717
